FAERS Safety Report 6438154-8 (Version None)
Quarter: 2009Q4

REPORT INFORMATION
  Report Type: 
  Country: None (occurrence: None)
  Receive Date: 20091112
  Receipt Date: 20091031
  Transmission Date: 20100525
  Serious: Yes (Other)
  Sender: FDA-Public Use
  Company Number: AU-PFIZER INC-2009269285

PATIENT
  Age: 70 Year
  Sex: Male

DRUGS (8)
  1. NEURONTIN [Suspect]
     Indication: NEURALGIA
     Dosage: UNK
  2. METFORMIN HCL [Concomitant]
     Indication: DIABETES MELLITUS
     Dosage: 1000
  3. CADUET [Concomitant]
     Dosage: 5/40
  4. CELEBREX [Concomitant]
     Dosage: UNK
  5. COVERSYL PLUS [Concomitant]
     Dosage: UNK
  6. MINIPRESS [Concomitant]
     Dosage: 0.5 MG, 2X/DAY
  7. COMBIGAN [Concomitant]
     Indication: GLAUCOMA
     Dosage: UNK
     Route: 031
  8. NEXIUM [Concomitant]
     Dosage: UNK

REACTIONS (1)
  - DERMATITIS BULLOUS [None]
